FAERS Safety Report 24325589 (Version 1)
Quarter: 2024Q3

REPORT INFORMATION
  Report Type: Spontaneous
  Country: US (occurrence: US)
  Receive Date: 20240917
  Receipt Date: 20240917
  Transmission Date: 20241016
  Serious: Yes (Other)
  Sender: AMGEN
  Company Number: US-AMGEN-USASP2024181265

PATIENT
  Age: 65 Year
  Sex: Male

DRUGS (5)
  1. TEPROTUMUMAB [Suspect]
     Active Substance: TEPROTUMUMAB
     Indication: Graves^ disease
     Dosage: UNK (COMPLETING SEVEN OUT OF EIGHT CYCLES OF THERAPY)
     Route: 065
  2. METHIMAZOLE [Concomitant]
     Active Substance: METHIMAZOLE
     Indication: Graves^ disease
     Dosage: 10 MILLIGRAM, QD
  3. METHIMAZOLE [Concomitant]
     Active Substance: METHIMAZOLE
     Dosage: 2.5 MILLIGRAM,DOSE DECREASED
  4. LEVOTHYROXINE [Concomitant]
     Active Substance: LEVOTHYROXINE\LEVOTHYROXINE SODIUM
     Indication: Graves^ disease
     Dosage: 150 MICROGRAM
  5. LEVOTHYROXINE [Concomitant]
     Active Substance: LEVOTHYROXINE\LEVOTHYROXINE SODIUM
     Indication: Autoimmune thyroiditis

REACTIONS (2)
  - Papillary thyroid cancer [Unknown]
  - Therapy non-responder [Unknown]
